FAERS Safety Report 4598987-X (Version None)
Quarter: 2005Q1

REPORT INFORMATION
  Report Type: 
  Country: None (occurrence: None)
  Receive Date: 20050302
  Receipt Date: 20040223
  Transmission Date: 20050727
  Serious: Yes (Disabling)
  Sender: FDA-Public Use
  Company Number: 7467

PATIENT
  Age: 49 Year
  Sex: Male

DRUGS (5)
  1. METHOTREXATE [Suspect]
     Indication: RHEUMATOID ARTHRITIS
     Dosage: 20 MG WEEKLY; SC
     Route: 058
     Dates: start: 20030507, end: 20031210
  2. PREDNISOLONE [Concomitant]
  3. ETORICOXIB [Concomitant]
  4. ALENDRONATE SODIUM [Concomitant]
  5. CALCIUM CARBONATE + VITAMIN D [Concomitant]

REACTIONS (1)
  - ERECTILE DYSFUNCTION [None]
